FAERS Safety Report 6241539-6 (Version None)
Quarter: 2009Q2

REPORT INFORMATION
  Report Type: 
  Country: None (occurrence: None)
  Receive Date: 20090623
  Receipt Date: 20050119
  Transmission Date: 20091009
  Serious: Yes (Hospitalization)
  Sender: FDA-Public Use
  Company Number: SE-ROCHE-356166

PATIENT
  Sex: Female
  Weight: 67 kg

DRUGS (45)
  1. DACLIZUMAB [Suspect]
     Dosage: BASELINE VISIT
     Route: 042
     Dates: start: 20031130, end: 20031130
  2. DACLIZUMAB [Suspect]
     Dosage: WEEK 2, 4, 6 AND 8 VISIT
     Route: 042
     Dates: start: 20031215
  3. MYCOPHENOLATE MOFETIL [Suspect]
     Route: 048
     Dates: start: 20031201, end: 20040305
  4. MYCOPHENOLATE MOFETIL [Suspect]
     Route: 048
     Dates: start: 20040326
  5. SIROLIMUS [Suspect]
     Route: 048
     Dates: start: 20031201, end: 20031217
  6. SIROLIMUS [Suspect]
     Route: 048
     Dates: start: 20031218, end: 20040315
  7. TACROLIMUS [Suspect]
     Route: 048
     Dates: start: 20040315, end: 20040328
  8. TACROLIMUS [Suspect]
     Route: 048
     Dates: start: 20040329, end: 20041127
  9. TACROLIMUS [Suspect]
     Route: 048
     Dates: start: 20041128
  10. PREDNISOLONE [Suspect]
     Dosage: FORM: INTRAVENOUS AMP
     Route: 050
     Dates: start: 20031130, end: 20031202
  11. PREDNISOLONE [Suspect]
     Dosage: FORM: ORAL TABLET
     Route: 050
     Dates: start: 20031202, end: 20040510
  12. PREDNISOLONE [Suspect]
     Dosage: FORM: ORAL TABLET
     Route: 050
     Dates: start: 20040511, end: 20061206
  13. METHYLPREDNISOLONE [Suspect]
     Route: 042
     Dates: start: 20031130, end: 20031130
  14. METHYLPREDNISOLONE [Suspect]
     Route: 042
     Dates: start: 20040312, end: 20040316
  15. VALGANCICLOVIR HCL [Concomitant]
     Route: 048
     Dates: start: 20031207
  16. FUROSEMID [Concomitant]
     Route: 048
     Dates: start: 20031202
  17. PANTOPRAZOL [Concomitant]
     Route: 048
     Dates: start: 20031222
  18. ACETYLSALICYLIC ACID [Concomitant]
     Route: 048
     Dates: start: 20031215
  19. ACYCLOVIR [Concomitant]
     Route: 048
     Dates: start: 20041129
  20. ACTRAPID [Concomitant]
     Route: 058
     Dates: start: 20040314
  21. AMOXICILLIN [Concomitant]
     Route: 048
     Dates: start: 20040213, end: 20040220
  22. ANTI-THYMOCYTE GLOBULIN NOS [Concomitant]
     Route: 042
     Dates: start: 20040316, end: 20040320
  23. ANTI-THYMOCYTE GLOBULIN NOS [Concomitant]
     Route: 042
     Dates: start: 20040323, end: 20040328
  24. CEFADROXIL [Concomitant]
     Route: 048
     Dates: start: 20040914, end: 20040924
  25. CEFADROXIL [Concomitant]
     Route: 048
     Dates: start: 20041108, end: 20041118
  26. CEFOTAXIM [Concomitant]
     Route: 042
     Dates: start: 20031130, end: 20031130
  27. CEFUROXIME [Concomitant]
     Route: 042
     Dates: start: 20040909, end: 20040913
  28. CEFUROXIME [Concomitant]
     Route: 042
     Dates: start: 20041103, end: 20041107
  29. CIPROFLOXACIN [Concomitant]
     Route: 048
     Dates: start: 20041206, end: 20050825
  30. EPOETIN [Concomitant]
     Route: 058
     Dates: start: 20040413
  31. FELODIPINE [Concomitant]
     Route: 048
     Dates: start: 20040206
  32. GLYBURIDE [Concomitant]
     Route: 048
     Dates: start: 20040329
  33. KALCIUMKARBONAT [Concomitant]
     Route: 048
     Dates: start: 20040319
  34. KALIUMKLORID [Concomitant]
     Route: 048
     Dates: start: 20040319
  35. MECILLINAM [Concomitant]
     Route: 048
     Dates: start: 20040413, end: 20040418
  36. MEROPENEM [Concomitant]
     Route: 042
     Dates: start: 20040310, end: 20040318
  37. MEROPENEM [Concomitant]
     Route: 042
     Dates: start: 20041128, end: 20041206
  38. METRONIDAZOLE [Concomitant]
     Route: 048
     Dates: start: 20040117
  39. NATRIUM HYDROGENCARBONATE [Concomitant]
     Route: 048
     Dates: start: 20040312, end: 20040427
  40. PENTAMIDIN [Concomitant]
     Dosage: ROUTE: IH
     Route: 055
     Dates: start: 20031206, end: 20031206
  41. PENTAMIDIN [Concomitant]
     Route: 055
     Dates: start: 20040112, end: 20040112
  42. PENTAMIDIN [Concomitant]
     Route: 055
     Dates: start: 20040213, end: 20040213
  43. PENTAMIDIN [Concomitant]
     Route: 055
     Dates: start: 20040329, end: 20040329
  44. PENTAMIDIN [Concomitant]
     Route: 055
     Dates: start: 20040427, end: 20040427
  45. VANCOMYCIN [Concomitant]
     Route: 042
     Dates: start: 20040311

REACTIONS (5)
  - DIVERTICULITIS [None]
  - INFECTION [None]
  - RENAL IMPAIRMENT [None]
  - SEPSIS [None]
  - UROSEPSIS [None]
